FAERS Safety Report 8468114 (Version 3)
Quarter: 2012Q4

REPORT INFORMATION
  Report Type: Report from Study
  Country: ES (occurrence: ES)
  Receive Date: 20120320
  Receipt Date: 20121210
  Transmission Date: 20130627
  Serious: Yes (Hospitalization)
  Sender: FDA-Public Use
  Company Number: ES-JNJFOC-20120307614

PATIENT
  Age: 35 Year
  Sex: Male
  Weight: 125.7 kg

DRUGS (9)
  1. TRANKIMAZIN [Concomitant]
     Indication: ANXIETY
     Route: 065
     Dates: start: 20120301, end: 20120313
  2. TRANKIMAZIN [Concomitant]
     Indication: ANXIETY
     Route: 065
     Dates: start: 20120201, end: 20120229
  3. TRANKIMAZIN [Concomitant]
     Indication: ANXIETY
     Route: 065
     Dates: start: 20111208, end: 20120130
  4. ZELDOX [Concomitant]
     Indication: INSOMNIA
     Dates: start: 20120312
  5. ETUMINA [Concomitant]
     Indication: INSOMNIA
     Dates: start: 20120312
  6. PALIPERIDONE PALMITATE [Suspect]
     Indication: SCHIZOPHRENIA
     Route: 030
     Dates: start: 20111028
  7. PALIPERIDONE PALMITATE [Suspect]
     Indication: SCHIZOPHRENIA
     Route: 030
     Dates: start: 20120309, end: 20120309
  8. CITALOPRAM HYDROBROMIDE [Concomitant]
     Indication: DEPRESSION
     Dates: start: 20091218
  9. DIAZEPAM [Concomitant]
     Indication: ANXIETY
     Route: 065
     Dates: start: 20120213, end: 20120313

REACTIONS (1)
  - Anxiety [Recovered/Resolved]
